FAERS Safety Report 8327859-X (Version None)
Quarter: 2012Q2

REPORT INFORMATION
  Report Type: 
  Country: None (occurrence: None)
  Receive Date: 20120502
  Receipt Date: 20120426
  Transmission Date: 20120825
  Serious: Yes (Other)
  Sender: FDA-Public Use
  Company Number: BR-MPIJNJ-2012-03023

PATIENT

DRUGS (3)
  1. VELCADE [Suspect]
     Indication: PRODUCT USED FOR UNKNOWN INDICATION
     Dosage: 1.3 MG/M2, UNK
     Route: 065
  2. DEXAMETHASONE [Concomitant]
  3. CYCLOPHOSPHAMIDE [Concomitant]

REACTIONS (1)
  - DEPRESSION [None]
